FAERS Safety Report 15588014 (Version 9)
Quarter: 2019Q1

REPORT INFORMATION
  Report Type: Report from Study
  Country: US (occurrence: US)
  Receive Date: 20181105
  Receipt Date: 20190329
  Transmission Date: 20190417
  Serious: Yes (Hospitalization, Other)
  Sender: FDA-Public Use
  Company Number: US-ACTELION-A-NJ2018-181310

PATIENT
  Age: 76 Year
  Sex: Female
  Weight: 68.48 kg

DRUGS (8)
  1. UPTRAVI [Suspect]
     Active Substance: SELEXIPAG
     Indication: PULMONARY ARTERIAL HYPERTENSION
     Dosage: 1200 MCG, UNK
     Route: 048
  2. UPTRAVI [Suspect]
     Active Substance: SELEXIPAG
     Dosage: 200 MCG, BID
     Route: 048
  3. OPSUMIT [Concomitant]
     Active Substance: MACITENTAN
     Indication: PULMONARY ARTERIAL HYPERTENSION
     Dosage: UNK
     Route: 048
  4. UPTRAVI [Suspect]
     Active Substance: SELEXIPAG
     Dosage: 600 MCG, BID
     Route: 048
  5. UPTRAVI [Suspect]
     Active Substance: SELEXIPAG
     Dosage: 800 MCG, BID
     Route: 048
  6. ELIQUIS [Concomitant]
     Active Substance: APIXABAN
  7. DILTIAZEM. [Concomitant]
     Active Substance: DILTIAZEM
  8. UPTRAVI [Suspect]
     Active Substance: SELEXIPAG
     Dosage: 400 MCG, BID
     Route: 048
     Dates: start: 201812

REACTIONS (27)
  - Feeling drunk [Unknown]
  - Gait disturbance [Unknown]
  - Nervousness [Unknown]
  - Vomiting [Unknown]
  - Urinary tract infection [Unknown]
  - Heart rate decreased [Unknown]
  - Bone density decreased [Unknown]
  - Cough [Not Recovered/Not Resolved]
  - Haemorrhage [Unknown]
  - Spinal fracture [Unknown]
  - Bone pain [Recovering/Resolving]
  - Dizziness [Unknown]
  - Headache [Unknown]
  - Presyncope [Unknown]
  - Anaemia [Unknown]
  - Fall [Unknown]
  - Hypotension [Unknown]
  - Asthenia [Unknown]
  - Decreased appetite [Unknown]
  - Vision blurred [Unknown]
  - Influenza [Unknown]
  - Back pain [Unknown]
  - Constipation [Unknown]
  - Nausea [Unknown]
  - Pain [Unknown]
  - Unevaluable event [Not Recovered/Not Resolved]
  - Balance disorder [Unknown]

NARRATIVE: CASE EVENT DATE: 20190311
